FAERS Safety Report 13675938 (Version 1)
Quarter: 2017Q2

REPORT INFORMATION
  Report Type: Spontaneous
  Country: US (occurrence: US)
  Receive Date: 20170620
  Receipt Date: 20170620
  Transmission Date: 20170830
  Serious: Yes (Other)
  Sender: FDA-Public Use
  Company Number: None

PATIENT
  Age: 55 Year
  Sex: Female

DRUGS (1)
  1. XIIDRA [Suspect]
     Active Substance: LIFITEGRAST
     Indication: DRY EYE
     Dates: start: 20170313, end: 20170423

REACTIONS (5)
  - Gastric disorder [None]
  - Migraine [None]
  - Dyspnoea [None]
  - Headache [None]
  - Disturbance in attention [None]

NARRATIVE: CASE EVENT DATE: 20170313
